FAERS Safety Report 9319680 (Version 1)
Quarter: 2013Q2

REPORT INFORMATION
  Report Type: Spontaneous
  Country: US (occurrence: None)
  Receive Date: 20130529
  Receipt Date: 20130529
  Transmission Date: 20140414
  Serious: Yes (Other)
  Sender: FDA-Public Use
  Company Number: None

PATIENT
  Age: 39 Year
  Sex: Female
  Weight: 68.04 kg

DRUGS (1)
  1. FLAGYL [Suspect]
     Indication: CLOSTRIDIUM DIFFICILE INFECTION
     Dosage: 1 TABLET
     Route: 048
     Dates: start: 20130524, end: 20130526

REACTIONS (4)
  - Dyskinesia [None]
  - Tremor [None]
  - Facial pain [None]
  - Muscle spasms [None]
